FAERS Safety Report 16298226 (Version 1)
Quarter: 2019Q2

REPORT INFORMATION
  Report Type: Spontaneous
  Country: PK (occurrence: PK)
  Receive Date: 20190510
  Receipt Date: 20190510
  Transmission Date: 20190711
  Serious: Yes (Hospitalization, Other)
  Sender: FDA-Public Use
  Company Number: PK-SA-2019SA124573

PATIENT
  Age: 72 Year
  Sex: Female

DRUGS (2)
  1. NEODIPAR [Suspect]
     Active Substance: METFORMIN HYDROCHLORIDE
     Indication: HYPERGLYCAEMIA
     Dosage: 850 MG, QD
     Route: 048
     Dates: start: 20180507, end: 20190504
  2. GLIMEPIRIDE. [Suspect]
     Active Substance: GLIMEPIRIDE
     Indication: DIABETES MELLITUS
     Dosage: 3 MG, QD
     Route: 048
     Dates: start: 20140507, end: 20190504

REACTIONS (4)
  - Hyperglycaemia [Recovering/Resolving]
  - Malaise [Unknown]
  - Diabetes mellitus inadequate control [Unknown]
  - Irregular breathing [Recovered/Resolved]

NARRATIVE: CASE EVENT DATE: 20190207
